FAERS Safety Report 6651127-5 (Version None)
Quarter: 2010Q1

REPORT INFORMATION
  Report Type: 
  Country: None (occurrence: None)
  Receive Date: 20100322
  Receipt Date: 20100309
  Transmission Date: 20100710
  Serious: No
  Sender: FDA-Public Use
  Company Number: B0640115A

PATIENT
  Sex: Female
  Weight: 1.8144 kg

DRUGS (10)
  1. METOCLOPRAMIDE [Suspect]
     Dosage: 10 MG / SINGLE DOSE / TRANSPLACENTA
     Route: 064
  2. RANITIDINE HYDROCHLORIDE [Suspect]
     Dosage: 150 MG / SINGLE DOSE / TRANSPLACENTA
     Route: 064
  3. FUROSEMIDE [Suspect]
     Dosage: 40 MG / THREE TIMES PER DAY / TRANS
     Route: 064
  4. POTASSIUM SALT (FORMULATION UNKNOWN) (POTASSIUM SALT) [Suspect]
     Dosage: UNK / UNK / TRANSPLACENTARY
     Route: 064
  5. DOBUTAMINE (FORMULATION UNKNOWN) (DOBUTAMINE) [Suspect]
     Dosage: 5 UG/KG/MIN / UNKNOWN / TRANSPLACENTARY
     Route: 064
  6. DOPAMINE (FORMULATION UNKNOWN) (DOPAMINE) [Suspect]
     Dosage: 5 UG/KG/MIN / UNKNOWN / TRANSPLACENTARY
     Route: 064
  7. OXYGEN (FORMULATION UNKNOWN) (OXYGEN) [Suspect]
     Dosage: UNK / UNK / TRANSPLACENTARY
     Route: 064
  8. FENTANYL [Suspect]
     Indication: ANAESTHESIA
     Dosage: UNK / UNK / TRANSPLANCENTARY
     Route: 064
  9. THIOPENTAL SODIUM [Suspect]
     Dosage: UNK / UNK / TRANSPLACENTARY
     Route: 064
  10. ROCURONIUM BROMIDE (FORMULATION UNKNOWN) (ROCURONIUM BROMIDE) [Suspect]
     Dosage: 40 MG / SINGLE DOSE / TRANSPLACENTA
     Route: 064

REACTIONS (5)
  - APGAR SCORE LOW [None]
  - CAESAREAN SECTION [None]
  - CYANOSIS NEONATAL [None]
  - FOETAL DISTRESS SYNDROME [None]
  - MATERNAL DRUGS AFFECTING FOETUS [None]
